FAERS Safety Report 4728104-4 (Version None)
Quarter: 2005Q3

REPORT INFORMATION
  Report Type: 
  Country: None (occurrence: None)
  Receive Date: 20050729
  Receipt Date: 20050718
  Transmission Date: 20060218
  Serious: Yes (Hospitalization)
  Sender: FDA-Public Use
  Company Number: PHBS2005IT10444

PATIENT
  Age: 56 Year
  Sex: Female

DRUGS (6)
  1. CHEMOTHERAPEUTICS,OTHER [Concomitant]
     Route: 065
  2. FENTANYL CITRATE [Concomitant]
     Dosage: 25 MICROGRAM/D
     Route: 062
  3. HERCEPTIN [Concomitant]
     Route: 065
  4. DELTACORTENE [Concomitant]
     Dosage: 25 MG/D
     Route: 048
  5. COUMADIN [Concomitant]
     Route: 065
  6. AREDIA [Suspect]
     Indication: METASTASES TO BONE
     Dosage: 90 MG, QMO
     Route: 042
     Dates: start: 20010604, end: 20050616

REACTIONS (4)
  - ASEPTIC NECROSIS BONE [None]
  - JAW DISORDER [None]
  - OSTEOLYSIS [None]
  - OSTEONECROSIS [None]
